FAERS Safety Report 19779320 (Version 1)
Quarter: 2021Q3

REPORT INFORMATION
  Report Type: Spontaneous
  Country: NL (occurrence: NL)
  Receive Date: 20210902
  Receipt Date: 20210902
  Transmission Date: 20211014
  Serious: Yes (Life-Threatening, Hospitalization)
  Sender: FDA-Public Use
  Company Number: NL-TEVA-2021-NL-1947327

PATIENT
  Age: 51 Year
  Sex: Male
  Weight: 97 kg

DRUGS (1)
  1. DEXAMETHASON OOGDR 1MG/ML (DI?NA?FOSFAAT) / BRAND NAME NOT SPECIFIED [Suspect]
     Active Substance: DEXAMETHASONE SODIUM PHOSPHATE
     Indication: RETINAL DETACHMENT
     Dosage: 2DD 1 DROP LEFT; UNIT DOSE: 1GTT; THERAPY END DATE: ASKU
     Dates: start: 202103

REACTIONS (3)
  - Intestinal ischaemia [Recovering/Resolving]
  - Mesenteric vein thrombosis [Recovering/Resolving]
  - Portal vein thrombosis [Recovering/Resolving]

NARRATIVE: CASE EVENT DATE: 20210803
